FAERS Safety Report 20120271 (Version 1)
Quarter: 2021Q4

REPORT INFORMATION
  Report Type: Spontaneous
  Country: GB (occurrence: GB)
  Receive Date: 20211126
  Receipt Date: 20211126
  Transmission Date: 20220303
  Serious: Yes (Death, Hospitalization, Other)
  Sender: FDA-Public Use
  Company Number: GB-LICONSA-2021-009286

PATIENT

DRUGS (6)
  1. OMEPRAZOLE [Suspect]
     Active Substance: OMEPRAZOLE
     Indication: Duodenal ulcer
     Dosage: OMEPRAZOLE 20MG ONCE A DAY
     Route: 065
     Dates: start: 20210626
  2. OMEPRAZOLE [Suspect]
     Active Substance: OMEPRAZOLE
     Indication: Product used for unknown indication
  3. DEXAMETHASONE [Suspect]
     Active Substance: DEXAMETHASONE
     Indication: Product used for unknown indication
     Dosage: DEXAMETHASONE 4MG ONCE A DAY
     Route: 065
     Dates: start: 20210626
  4. SANDOSTATIN [Suspect]
     Active Substance: OCTREOTIDE ACETATE
     Indication: Neuroendocrine tumour
     Dosage: SANDOSTATIN 30 MG (MILLIGRAM) 3 WEEKLY
     Route: 030
  5. OXYCODONE HYDROCHLORIDE [Suspect]
     Active Substance: OXYCODONE HYDROCHLORIDE
     Indication: Product used for unknown indication
     Dosage: OXYCODONE HYDROCHLORIDE 5ML EVERY 4 HOURS
     Dates: start: 20210626, end: 20210627
  6. TRAMADOL [Suspect]
     Active Substance: TRAMADOL
     Indication: Product used for unknown indication
     Dosage: 2 TRAMADOL AS ADVISED BY GP

REACTIONS (8)
  - Cerebrovascular accident [Unknown]
  - Circulatory collapse [Fatal]
  - Seizure [Fatal]
  - Dysarthria [Unknown]
  - Arthralgia [Unknown]
  - Erythema [Unknown]
  - Renal disorder [Fatal]
  - General physical health deterioration [Fatal]

NARRATIVE: CASE EVENT DATE: 20210626
